FAERS Safety Report 9290142 (Version 1)
Quarter: 2013Q2

REPORT INFORMATION
  Report Type: Spontaneous
  Country: US (occurrence: US)
  Receive Date: 20130515
  Receipt Date: 20130515
  Transmission Date: 20140414
  Serious: Yes (Other)
  Sender: FDA-Public Use
  Company Number: US-PFIZER INC-2013146877

PATIENT
  Age: 82 Year
  Sex: Female
  Weight: 71.66 kg

DRUGS (4)
  1. REVATIO [Suspect]
     Indication: PULMONARY HYPERTENSION
     Dosage: 20 MG, 3X/DAY
     Dates: start: 2012
  2. REVATIO [Suspect]
     Indication: PULMONARY FIBROSIS
  3. LASIX [Concomitant]
     Indication: GINGIVAL SWELLING
     Dosage: 10 MG, 1X/DAY
  4. LEVOTHYROXINE [Concomitant]
     Dosage: 25 UG, 1X/DAY

REACTIONS (1)
  - Open angle glaucoma [Not Recovered/Not Resolved]
